FAERS Safety Report 9197008 (Version 2)
Quarter: 2013Q4

REPORT INFORMATION
  Report Type: Report from Study
  Country: MX (occurrence: MX)
  Receive Date: 20130328
  Receipt Date: 20131115
  Transmission Date: 20140711
  Serious: Yes (Death, Hospitalization, Other)
  Sender: FDA-Public Use
  Company Number: PHHY2013MX030477

PATIENT
  Age: 83 Year
  Sex: Female

DRUGS (2)
  1. EXELON PATCH [Suspect]
     Indication: MENTAL IMPAIRMENT
     Dosage: 4.6 MG, DAILY
     Route: 062
     Dates: end: 201302
  2. EXELON PATCH [Suspect]
     Indication: AMNESIA
     Dosage: 9.5 MG DAILY
     Route: 062
     Dates: end: 20130227

REACTIONS (2)
  - Cardiac arrest [Fatal]
  - Malaise [Fatal]
